FAERS Safety Report 17973923 (Version 2)
Quarter: 2020Q3

REPORT INFORMATION
  Report Type: Spontaneous
  Country: US (occurrence: US)
  Receive Date: 20200702
  Receipt Date: 20200708
  Transmission Date: 20201103
  Serious: Yes (Other)
  Sender: FDA-Public Use
  Company Number: US-PFIZER INC-2020252632

PATIENT
  Age: 63 Year
  Sex: Male

DRUGS (1)
  1. LOPID [Suspect]
     Active Substance: GEMFIBROZIL
     Indication: BLOOD TRIGLYCERIDES INCREASED
     Dosage: UNK
     Dates: start: 2017

REACTIONS (2)
  - Hernia [Unknown]
  - Therapeutic response unexpected [Unknown]
